FAERS Safety Report 7966572-5 (Version None)
Quarter: 2011Q4

REPORT INFORMATION
  Report Type: 
  Country: None (occurrence: None)
  Receive Date: 20111208
  Receipt Date: 20100223
  Transmission Date: 20120403
  Serious: Yes (Hospitalization, Other)
  Sender: FDA-Public Use
  Company Number: PHHY2010TW17500

PATIENT
  Sex: Male

DRUGS (6)
  1. GLEEVEC [Suspect]
     Dosage: 600 MG, UNK
     Dates: end: 20100525
  2. GLEEVEC [Suspect]
     Dosage: 400 MG, UNK
     Route: 048
  3. GLEEVEC [Suspect]
     Dosage: 6 DF, UNK
     Route: 048
  4. GLEEVEC [Suspect]
     Dosage: 800 MG, UNK
     Dates: end: 20110101
  5. GLEEVEC [Suspect]
     Indication: GASTROINTESTINAL STROMAL TUMOUR
     Dosage: 400 MG-800 MG, UNK
     Route: 048
  6. SUTENT [Suspect]
     Indication: GASTROINTESTINAL STROMAL TUMOUR
     Dosage: 3 DF, UNK
     Route: 048
     Dates: start: 20110101

REACTIONS (14)
  - METASTASES TO LIVER [None]
  - GASTROOESOPHAGEAL REFLUX DISEASE [None]
  - NAUSEA [None]
  - NEOPLASM PROGRESSION [None]
  - PRURITUS [None]
  - BLISTER [None]
  - NEOPLASM MALIGNANT [None]
  - DIZZINESS [None]
  - ABDOMINAL PAIN UPPER [None]
  - DRY SKIN [None]
  - SKIN EROSION [None]
  - TUMOUR ASSOCIATED FEVER [None]
  - PLEURAL EFFUSION [None]
  - ANAEMIA [None]
